FAERS Safety Report 4844985-8 (Version None)
Quarter: 2005Q4

REPORT INFORMATION
  Report Type: 
  Country: None (occurrence: None)
  Receive Date: 20051205
  Receipt Date: 20051005
  Transmission Date: 20060501
  Serious: Yes (Death, Hospitalization, Disabling)
  Sender: FDA-Public Use
  Company Number: US-MERCK-0510USA03358

PATIENT
  Age: 69 Year
  Sex: Female
  Weight: 41 kg

DRUGS (16)
  1. VIOXX [Suspect]
     Indication: RHEUMATOID ARTHRITIS
     Route: 048
     Dates: start: 20010116, end: 20031004
  2. VIOXX [Suspect]
     Indication: ARTHRITIS
     Route: 048
     Dates: start: 20010116, end: 20031004
  3. CALAN [Concomitant]
     Route: 065
  4. ULTRAM [Concomitant]
     Route: 065
  5. PREVACID [Concomitant]
     Route: 065
  6. ZYRTEC [Concomitant]
     Route: 065
  7. NIFEREX [Concomitant]
     Route: 065
  8. LORTAB [Concomitant]
     Route: 065
  9. LASIX [Concomitant]
     Route: 065
  10. PERCOCET [Concomitant]
     Route: 065
  11. ALDACTONE [Concomitant]
     Route: 065
  12. COLACE [Concomitant]
     Route: 065
  13. VITA C [Concomitant]
     Route: 065
  14. TYLENOL [Concomitant]
     Route: 065
  15. PREDNISONE [Concomitant]
     Route: 065
  16. PREMARIN [Concomitant]
     Route: 065

REACTIONS (22)
  - ABDOMINAL DISCOMFORT [None]
  - ANAEMIA [None]
  - ANGINA PECTORIS [None]
  - ANOREXIA [None]
  - ARTHRALGIA [None]
  - CHONDROCALCINOSIS [None]
  - DIVERTICULUM INTESTINAL [None]
  - DRUG INEFFECTIVE [None]
  - ECCHYMOSIS [None]
  - HEADACHE [None]
  - HYPERSENSITIVITY [None]
  - HYPERTENSION [None]
  - HYPOTHYROIDISM [None]
  - INTESTINAL HAEMORRHAGE [None]
  - IRON DEFICIENCY ANAEMIA [None]
  - MYOCARDIAL INFARCTION [None]
  - RAYNAUD'S PHENOMENON [None]
  - RECTAL HAEMORRHAGE [None]
  - REFLUX OESOPHAGITIS [None]
  - SCIATICA [None]
  - SYNCOPE [None]
  - WEIGHT DECREASED [None]
